FAERS Safety Report 7458476-1 (Version None)
Quarter: 2011Q2

REPORT INFORMATION
  Report Type: 
  Country: None (occurrence: None)
  Receive Date: 20110504
  Receipt Date: 20110426
  Transmission Date: 20111010
  Serious: Yes (Hospitalization)
  Sender: FDA-Public Use
  Company Number: R0011167B

PATIENT
  Age: 74 Year
  Sex: Female

DRUGS (3)
  1. FLU TRIVALENT SPLIT + AS03/2 [Suspect]
     Route: 030
     Dates: start: 20091016, end: 20091016
  2. PROPRANOLOL [Suspect]
     Indication: HYPERTENSION
     Dosage: 80MG PER DAY
     Route: 048
     Dates: start: 19850101, end: 20100405
  3. DILTIAZEM [Suspect]
     Indication: HYPERTENSION
     Dosage: 1TAB PER DAY
     Route: 048
     Dates: start: 20070101, end: 20100405

REACTIONS (1)
  - PRESYNCOPE [None]
